FAERS Safety Report 9030878 (Version 2)
Quarter: 2014Q1

REPORT INFORMATION
  Report Type: Report from Study
  Country: IE (occurrence: IE)
  Receive Date: 20130123
  Receipt Date: 20140114
  Transmission Date: 20141002
  Serious: Yes (Death)
  Sender: FDA-Public Use
  Company Number: IE-ROCHE-1182016

PATIENT
  Age: 83 Year
  Sex: Male

DRUGS (11)
  1. RANIBIZUMAB [Suspect]
     Indication: PRODUCT USED FOR UNKNOWN INDICATION
     Route: 050
  2. GALFER [Concomitant]
     Indication: IRON DEFICIENCY
     Route: 065
     Dates: start: 2008
  3. LIPOSTAT [Concomitant]
     Indication: HYPERCHOLESTEROLAEMIA
     Route: 065
     Dates: start: 2002
  4. ZANIDIP [Concomitant]
     Indication: HYPERTENSION
     Route: 065
     Dates: start: 2007
  5. WARFARIN [Concomitant]
     Indication: PROPHYLAXIS
     Route: 065
     Dates: start: 1997
  6. SERETIDE [Concomitant]
     Indication: ASTHMA
     Route: 065
     Dates: start: 1997
  7. SPIRIVA [Concomitant]
     Indication: ASTHMA
     Route: 065
     Dates: start: 1997
  8. AMIODARONE HYDROCHLORIDE [Concomitant]
     Indication: HYPERTENSION
     Route: 065
     Dates: start: 2011
  9. LEXAPRO [Concomitant]
     Indication: DEPRESSION
     Route: 065
     Dates: start: 2007
  10. MOLIPAXIN [Concomitant]
     Indication: DEPRESSION
     Route: 065
     Dates: start: 2007
  11. ELTROXIN [Concomitant]
     Indication: HYPOTHYROIDISM
     Route: 065
     Dates: start: 2009

REACTIONS (1)
  - Death [Fatal]
